FAERS Safety Report 13985145 (Version 1)
Quarter: 2017Q3

REPORT INFORMATION
  Report Type: Report from Study
  Country: None (occurrence: GR)
  Receive Date: 20170919
  Receipt Date: 20170919
  Transmission Date: 20171128
  Serious: Yes (Death)
  Sender: FDA-Public Use
  Company Number: GR-ABBVIE-17P-066-2105127-00

PATIENT
  Age: 76 Year
  Sex: Male
  Weight: 56 kg

DRUGS (8)
  1. GLUCOFREE [Concomitant]
     Indication: DIABETES MELLITUS
     Route: 048
  2. DUODOPA [Suspect]
     Active Substance: CARBIDOPA\LEVODOPA
     Indication: PARKINSON^S DISEASE
     Dosage: MORNING DOSE: 9.0ML; CONTINUOUS RATE: 2.5ML/H; EXTRA DOSE: 1.8ML
     Route: 050
     Dates: start: 20140528
  3. PLAVIX [Concomitant]
     Active Substance: CLOPIDOGREL BISULFATE
     Indication: PRODUCT USED FOR UNKNOWN INDICATION
     Route: 048
  4. PENRAZOL [Concomitant]
     Indication: PRODUCT USED FOR UNKNOWN INDICATION
     Route: 048
  5. SEROQUEL [Concomitant]
     Active Substance: QUETIAPINE FUMARATE
     Indication: SLEEP DISORDER
     Route: 048
  6. FINAZIL [Concomitant]
     Indication: PROSTATIC DISORDER
     Route: 048
  7. OMNIC TOCAS [Concomitant]
     Indication: PROSTATIC DISORDER
     Route: 048
  8. KENACOMB [Concomitant]
     Indication: PRODUCT USED FOR UNKNOWN INDICATION
     Route: 061
     Dates: start: 20170903, end: 20170915

REACTIONS (2)
  - Dyspnoea [Fatal]
  - Pulmonary oedema [Fatal]

NARRATIVE: CASE EVENT DATE: 20170915
